FAERS Safety Report 14624642 (Version 2)
Quarter: 2018Q1

REPORT INFORMATION
  Report Type: Spontaneous
  Country: JP (occurrence: JP)
  Receive Date: 20180312
  Receipt Date: 20180327
  Transmission Date: 20180509
  Serious: No
  Sender: FDA-Public Use
  Company Number: JP-ELI_LILLY_AND_COMPANY-JP201803003248

PATIENT
  Age: 60 Year
  Sex: Male

DRUGS (8)
  1. BETANIS [Concomitant]
     Active Substance: MIRABEGRON
     Indication: DYSURIA
     Dosage: 50 MG, DAILY
     Route: 048
  2. LUMIGAN [Concomitant]
     Active Substance: BIMATOPROST
     Route: 047
  3. KARY UNI                           /00528801/ [Concomitant]
     Active Substance: PIRENOXINE
     Route: 047
  4. FEBURIC [Concomitant]
     Active Substance: FEBUXOSTAT
     Dosage: UNK
     Route: 048
  5. ATELEC [Concomitant]
     Active Substance: CILNIDIPINE
     Indication: HYPERTENSION
     Dosage: UNK
     Route: 048
  6. DETANTOL [Concomitant]
     Active Substance: BUNAZOSIN HYDROCHLORIDE
     Route: 047
  7. ZALUTIA [Suspect]
     Active Substance: TADALAFIL
     Indication: BENIGN PROSTATIC HYPERPLASIA
     Dosage: 5 MG, DAILY
     Route: 048
     Dates: start: 201801
  8. COSOPT [Concomitant]
     Active Substance: DORZOLAMIDE HYDROCHLORIDE\TIMOLOL MALEATE
     Route: 047

REACTIONS (3)
  - Intraocular pressure increased [Unknown]
  - Vision blurred [Unknown]
  - Ocular hyperaemia [Unknown]
